FAERS Safety Report 7417067-9 (Version None)
Quarter: 2011Q2

REPORT INFORMATION
  Report Type: 
  Country: None (occurrence: None)
  Receive Date: 20110415
  Receipt Date: 20110325
  Transmission Date: 20111010
  Serious: Yes (Other)
  Sender: FDA-Public Use
  Company Number: US-BAYER-200940128NA

PATIENT
  Sex: Male

DRUGS (19)
  1. INSULIN [Concomitant]
     Route: 042
  2. PROTAMINE SULFATE [Concomitant]
  3. NITROGLYCERIN [Concomitant]
  4. INOCOR [Concomitant]
  5. TRASYLOL [Suspect]
     Indication: CORONARY ARTERY BYPASS
     Dosage: UNK
     Route: 042
     Dates: start: 20050916, end: 20050916
  6. ISOFLURANE [Concomitant]
     Route: 042
  7. VERSED [Concomitant]
     Dosage: 5 MG, UNK
     Route: 042
  8. FENTANYL [Concomitant]
  9. CARDIOPLEGIA [Concomitant]
  10. FRESH FROZEN PLASMA [Concomitant]
     Dosage: 4 U, UNK
     Route: 042
     Dates: start: 20050916
  11. HEPARIN [Concomitant]
     Dosage: 3500
     Route: 042
  12. ALBUMIN (HUMAN) [Concomitant]
     Route: 042
  13. MANNITOL [Concomitant]
     Route: 042
  14. LIDOCAINE [Concomitant]
     Dosage: 100 MG, UNK
  15. VANCOMYCIN [Concomitant]
     Dosage: 500 MG, UNK
     Route: 042
  16. PROPOFOL [Concomitant]
  17. RED BLOOD CELLS [Concomitant]
     Dosage: 2 U, UNK
     Route: 042
     Dates: start: 20050916
  18. LASIX [Concomitant]
     Route: 042
  19. PLATELETS [Concomitant]
     Dosage: 2 U, UNK
     Route: 042
     Dates: start: 20050916

REACTIONS (11)
  - RENAL FAILURE [None]
  - RENAL IMPAIRMENT [None]
  - INJURY [None]
  - RENAL INJURY [None]
  - STRESS [None]
  - EMOTIONAL DISTRESS [None]
  - FEAR [None]
  - ANHEDONIA [None]
  - ANXIETY [None]
  - UNEVALUABLE EVENT [None]
  - PAIN [None]
